FAERS Safety Report 20851824 (Version 1)
Quarter: 2022Q2

REPORT INFORMATION
  Report Type: Spontaneous
  Country: RO (occurrence: RO)
  Receive Date: 20220520
  Receipt Date: 20220520
  Transmission Date: 20220721
  Serious: Yes (Other)
  Sender: FDA-Public Use
  Company Number: RO-SAMSUNG BIOEPIS-SB-2022-10663

PATIENT
  Age: 44 Year
  Sex: Female

DRUGS (11)
  1. ADALIMUMAB [Suspect]
     Active Substance: ADALIMUMAB
     Indication: Colitis ulcerative
     Dosage: 160/80 MILLIGRAM
     Route: 058
  2. TOFACITINIB CITRATE [Suspect]
     Active Substance: TOFACITINIB CITRATE
     Indication: Product used for unknown indication
     Dosage: 10 MILLIGRAM, QD (EIGHT WEEKS)
     Route: 065
     Dates: start: 202011
  3. TOFACITINIB CITRATE [Suspect]
     Active Substance: TOFACITINIB CITRATE
     Dosage: 20 MILLIGRAM, QD
     Route: 065
     Dates: start: 202010
  4. TOFACITINIB CITRATE [Suspect]
     Active Substance: TOFACITINIB CITRATE
     Dosage: 20 MILLIGRAM, QD,  (EIGHT WEEKS)
     Route: 065
     Dates: start: 202009
  5. MESALAMINE [Suspect]
     Active Substance: MESALAMINE
     Indication: Colitis
     Dosage: 1 GRAM, QD (INTRARECTAL)
     Route: 065
     Dates: start: 2005
  6. INFLIXIMAB [Suspect]
     Active Substance: INFLIXIMAB
     Indication: Product used for unknown indication
     Dosage: 300 MILLIGRAM (INITIATED IN MAY 2011 AT WEEK ZERO THEN AT WEEK 2, AND WEEK 6)
     Route: 042
  7. INFLIXIMAB [Suspect]
     Active Substance: INFLIXIMAB
     Dosage: 10 MILLIGRAM/KILOGRAM
     Route: 042
  8. INFLIXIMAB [Suspect]
     Active Substance: INFLIXIMAB
     Dosage: 300 MILLIGRAM (INITIATED IN MAY 2011 AT WEEK ZERO THEN AT WEEK 2, AND WEEK 6)
     Route: 042
  9. IMURAN [Suspect]
     Active Substance: AZATHIOPRINE
     Indication: Colitis
     Dosage: 50 MILLIGRAM, QD
     Route: 065
     Dates: start: 2012
  10. PREDNISOLONE ACETATE [Suspect]
     Active Substance: PREDNISOLONE ACETATE
     Indication: Colitis
     Dosage: 20 MILLIGRAM, QD (CORTICOTHERAPY)
     Route: 042
     Dates: start: 2011
  11. Salofalk [Concomitant]
     Indication: Colitis ulcerative
     Dosage: 2 GRAM, QD
     Route: 065
     Dates: start: 2011

REACTIONS (6)
  - Haemoglobin decreased [Recovered/Resolved]
  - Blood iron decreased [Recovered/Resolved]
  - Thrombocytosis [Recovered/Resolved]
  - Colitis [Unknown]
  - Colitis ulcerative [Unknown]
  - Drug ineffective [Unknown]

NARRATIVE: CASE EVENT DATE: 20200901
